FAERS Safety Report 18701647 (Version 1)
Quarter: 2021Q1

REPORT INFORMATION
  Report Type: Spontaneous
  Country: US (occurrence: US)
  Receive Date: 20210105
  Receipt Date: 20210105
  Transmission Date: 20210419
  Serious: Yes (Death)
  Sender: FDA-Public Use
  Company Number: US-PRIMUS PHARMACEUTICALS-2020PRI00217

PATIENT
  Age: 76 Year
  Sex: Male

DRUGS (1)
  1. VASCULERA [Suspect]
     Active Substance: MEDICAL FOOD
     Dosage: 630 MG, 1X/DAY
     Route: 048

REACTIONS (1)
  - Death [Fatal]

NARRATIVE: CASE EVENT DATE: 20201217
